FAERS Safety Report 20186671 (Version 1)
Quarter: 2021Q4

REPORT INFORMATION
  Report Type: Spontaneous
  Country: US (occurrence: US)
  Receive Date: 20211215
  Receipt Date: 20211215
  Transmission Date: 20220304
  Serious: No
  Sender: FDA-Public Use
  Company Number: US-EIGER BIOPHARMACEUTICALS-EIG-2021-000012

PATIENT
  Sex: Female

DRUGS (2)
  1. ZOKINVY [Suspect]
     Active Substance: LONAFARNIB
     Indication: Progeria
     Dosage: 50 MILLIGRAM CAPSULE
     Route: 048
     Dates: start: 20210518
  2. ZOKINVY [Suspect]
     Active Substance: LONAFARNIB
     Dosage: 75 MILLIGRAM CAPSULE
     Route: 048
     Dates: start: 20210518

REACTIONS (2)
  - Nasopharyngitis [Unknown]
  - Product administration interrupted [Unknown]
